FAERS Safety Report 5774757-1 (Version None)
Quarter: 2008Q2

REPORT INFORMATION
  Report Type: 
  Country: None (occurrence: None)
  Receive Date: 20080612
  Receipt Date: 20080604
  Transmission Date: 20081010
  Serious: Yes (Hospitalization, Other)
  Sender: FDA-Public Use
  Company Number: AR_50/08

PATIENT
  Age: 83 Year
  Sex: Male
  Weight: 82 kg

DRUGS (3)
  1. TECHNESCAN DTPA KIT [Suspect]
     Indication: DIAGNOSTIC PROCEDURE
     Dosage: 2.5 MCI, CEREBRAL SHUNT
     Dates: start: 20080318
  2. LISINOPRIL [Concomitant]
  3. ASACOL [Concomitant]

REACTIONS (10)
  - CNS VENTRICULITIS [None]
  - CONFUSIONAL STATE [None]
  - HEADACHE [None]
  - HYPERSENSITIVITY [None]
  - LUMBAR PUNCTURE ABNORMAL [None]
  - MENINGITIS ASEPTIC [None]
  - MENINGITIS CHEMICAL [None]
  - MENINGITIS VIRAL [None]
  - PURULENCE [None]
  - SHUNT MALFUNCTION [None]
